FAERS Safety Report 6137507-5 (Version None)
Quarter: 2009Q1

REPORT INFORMATION
  Report Type: 
  Country: None (occurrence: None)
  Receive Date: 20090326
  Receipt Date: 20090316
  Transmission Date: 20090719
  Serious: Yes (Death)
  Sender: FDA-Public Use
  Company Number: 1000005251

PATIENT
  Age: 56 Year
  Sex: Male
  Weight: 74 kg

DRUGS (6)
  1. CITALOPRAM HYDROBROMIDE [Suspect]
     Indication: DEPRESSION
     Dosage: 20 MG (20 MG, 1 IN 1 D), ORAL; 40 MG (20 MG, 2 IN 1 D), ORAL
     Route: 048
     Dates: start: 20090102, end: 20090122
  2. CITALOPRAM HYDROBROMIDE [Suspect]
     Indication: DEPRESSION
     Dosage: 20 MG (20 MG, 1 IN 1 D), ORAL; 40 MG (20 MG, 2 IN 1 D), ORAL
     Route: 048
     Dates: start: 20090123
  3. ATENOLOL [Concomitant]
  4. DIGOXIN [Concomitant]
  5. PERINDOPRIL ERBUMINE [Concomitant]
  6. WARFARIN SODIUM [Concomitant]

REACTIONS (1)
  - COMPLETED SUICIDE [None]
